FAERS Safety Report 10166431 (Version 1)
Quarter: 2014Q2

REPORT INFORMATION
  Report Type: Spontaneous
  Country: US (occurrence: US)
  Receive Date: 20140512
  Receipt Date: 20140512
  Transmission Date: 20141212
  Serious: Yes (Hospitalization)
  Sender: FDA-Public Use
  Company Number: US-BAYER-2014-067630

PATIENT
  Age: 39 Year
  Sex: Female

DRUGS (7)
  1. YASMIN [Suspect]
  2. SAFYRAL [Suspect]
  3. MORPHINE [Concomitant]
  4. ZOLPIDEM TARTRATE [Concomitant]
     Dosage: 10 MG, HS
     Route: 048
     Dates: start: 20120312
  5. HYDROCODONE/ACETAMINOPHEN [Concomitant]
     Indication: PAIN
     Dosage: 7.5-325 1-2 TEASPOONS EVERY 4-6 HOURS PRN
     Dates: start: 20120312
  6. CYCLOBENZAPRINE [Concomitant]
     Dosage: 10 MG, UNK
     Dates: start: 20120402
  7. VITAMIN D [Concomitant]
     Dosage: 1.25 MG, UNK
     Dates: start: 20120402

REACTIONS (2)
  - Deep vein thrombosis [None]
  - Thrombophlebitis superficial [None]
